FAERS Safety Report 5691310-9 (Version None)
Quarter: 2008Q2

REPORT INFORMATION
  Report Type: 
  Country: None (occurrence: None)
  Receive Date: 20080402
  Receipt Date: 20080327
  Transmission Date: 20081010
  Serious: Yes (Hospitalization, Other)
  Sender: FDA-Public Use
  Company Number: JP-BRISTOL-MYERS SQUIBB COMPANY-14103915

PATIENT
  Age: 82 Year
  Sex: Male

DRUGS (3)
  1. PARAPLATIN [Suspect]
     Indication: SMALL CELL LUNG CANCER STAGE UNSPECIFIED
     Dosage: 380MG 1/1 MONTHS FROM: 12-DEC-2007 TO 12-DEC-2007.
     Route: 041
     Dates: start: 20080109, end: 20080206
  2. CAMPTOSAR [Suspect]
     Indication: LUNG NEOPLASM MALIGNANT
     Dosage: 100 MG FROM: 12-DEC-2007 TO 12-DEC-2007.
     Route: 041
     Dates: start: 20080109, end: 20080206
  3. CHOREI-TO-GO-SHIMOTSU-TO [Concomitant]
     Route: 048
     Dates: start: 20050101, end: 20080206

REACTIONS (2)
  - BONE MARROW FAILURE [None]
  - INAPPROPRIATE ANTIDIURETIC HORMONE SECRETION [None]
